FAERS Safety Report 10734008 (Version 1)
Quarter: 2015Q1

REPORT INFORMATION
  Report Type: Spontaneous
  Country: US (occurrence: None)
  Receive Date: 20150121
  Receipt Date: 20150121
  Transmission Date: 20150721
  Serious: Yes (Other)
  Sender: FDA-Public Use
  Company Number: 2015-US-000411

PATIENT
  Sex: Female
  Weight: 54.4 kg

DRUGS (2)
  1. MAXALT (RIZATRIPTAN BENZOATE) [Concomitant]
     Active Substance: RIZATRIPTAN BENZOATE
  2. XYREM [Suspect]
     Active Substance: SODIUM OXYBATE
     Indication: SLEEP DISORDER
     Route: 048
     Dates: start: 200605, end: 2006

REACTIONS (6)
  - Pre-existing condition improved [None]
  - Thyroid disorder [None]
  - Diarrhoea [None]
  - Inappropriate schedule of drug administration [None]
  - Therapeutic response changed [None]
  - Off label use [None]

NARRATIVE: CASE EVENT DATE: 2006
